FAERS Safety Report 4709528-8 (Version None)
Quarter: 2005Q3

REPORT INFORMATION
  Report Type: 
  Country: None (occurrence: None)
  Receive Date: 20050707
  Receipt Date: 20050621
  Transmission Date: 20060218
  Serious: Yes (Hospitalization)
  Sender: FDA-Public Use
  Company Number: ACO_0173_2005

PATIENT
  Sex: Male

DRUGS (5)
  1. ZANAFLEX [Suspect]
     Dosage: DF PO
     Route: 048
  2. KLONOPIN [Suspect]
     Dosage: DF PO
     Route: 048
  3. FLEXERIL [Suspect]
     Dosage: DF PO
  4. NO-DOZ [Suspect]
     Dosage: DF PO
     Route: 048
  5. LEXAPRO [Concomitant]

REACTIONS (7)
  - DRUG SCREEN POSITIVE [None]
  - FEELINGS OF WORTHLESSNESS [None]
  - LOSS OF CONSCIOUSNESS [None]
  - MULTIPLE DRUG OVERDOSE [None]
  - POLYSUBSTANCE ABUSE [None]
  - SOMNOLENCE [None]
  - SUICIDAL IDEATION [None]
